FAERS Safety Report 9260804 (Version 1)
Quarter: 2013Q2

REPORT INFORMATION
  Report Type: Spontaneous
  Country: US (occurrence: None)
  Receive Date: 20130429
  Receipt Date: 20130429
  Transmission Date: 20140414
  Serious: Yes (Hospitalization)
  Sender: FDA-Public Use
  Company Number: None

PATIENT
  Age: 39 Year
  Sex: Female
  Weight: 72.6 kg

DRUGS (2)
  1. BEVACIZUMAB [Suspect]
     Dates: end: 20130328
  2. TEMOZOLOMIDE [Suspect]
     Dates: end: 20130401

REACTIONS (6)
  - Hypophagia [None]
  - Asthenia [None]
  - Lethargy [None]
  - Hypernatraemia [None]
  - Thrombocytopenia [None]
  - Anaemia [None]
